FAERS Safety Report 10020317 (Version 1)
Quarter: 2014Q1

REPORT INFORMATION
  Report Type: Report from Study
  Country: US (occurrence: US)
  Receive Date: 20140319
  Receipt Date: 20140319
  Transmission Date: 20141002
  Serious: Yes (Life-Threatening, Hospitalization)
  Sender: FDA-Public Use
  Company Number: US-009507513-1403USA006893

PATIENT
  Age: 56 Year
  Sex: Male
  Weight: 76 kg

DRUGS (20)
  1. VORINOSTAT [Suspect]
     Indication: DIFFUSE LARGE B-CELL LYMPHOMA
     Dosage: 400 MG, QD ON DAYS 1-5
     Route: 048
     Dates: start: 20130925, end: 20130929
  2. VORINOSTAT [Suspect]
     Dosage: 400 MG, QD ON DAYS 1-5
     Route: 048
     Dates: start: 20140212, end: 20140216
  3. VORINOSTAT [Suspect]
     Dosage: 200 MG DAILY CYCLE 8
     Route: 048
  4. CYCLOPHOSPHAMIDE [Suspect]
     Indication: DIFFUSE LARGE B-CELL LYMPHOMA
     Dosage: 750 MG/M2, IV OVER 30-60 MINUTES ON DAY 3
     Route: 042
     Dates: start: 20130927, end: 20130927
  5. CYCLOPHOSPHAMIDE [Suspect]
     Dosage: 750 MG/M2, IV OVER 30-60 MINUTES ON DAY 3
     Route: 042
     Dates: start: 20140214, end: 20140214
  6. RITUXIMAB [Suspect]
     Indication: DIFFUSE LARGE B-CELL LYMPHOMA
     Dosage: 375 MG/M2, IV INFUSION ON DAY 3
     Route: 042
     Dates: start: 20130927, end: 20130927
  7. RITUXIMAB [Suspect]
     Dosage: 375 MG/M2, IV INFUSION ON DAY 3
     Route: 042
     Dates: start: 20140214, end: 20140214
  8. DOXORUBICIN [Suspect]
     Indication: DIFFUSE LARGE B-CELL LYMPHOMA
     Dosage: 50 MG/M2, IVP ON DAY 3
     Route: 042
     Dates: start: 20130927, end: 20130927
  9. DOXORUBICIN [Suspect]
     Dosage: 50 MG/M2, IVP ON DAY 3
     Route: 042
     Dates: start: 20140214, end: 20140214
  10. VINCRISTINE [Suspect]
     Indication: DIFFUSE LARGE B-CELL LYMPHOMA
     Dosage: 1.4 MG/M2, IVP ON DAY 3
     Route: 042
     Dates: start: 20130927, end: 20130927
  11. VINCRISTINE [Suspect]
     Dosage: 1.4 MG/M2, IVP ON DAY 3
     Route: 042
     Dates: start: 20140214, end: 20140214
  12. PREDNISONE [Suspect]
     Indication: DIFFUSE LARGE B-CELL LYMPHOMA
     Dosage: 100 MG, QD ON DAYS 3-7
     Route: 048
     Dates: start: 20130927, end: 20131001
  13. PREDNISONE [Suspect]
     Dosage: 100 MG, QD ON DAYS 3-7
     Route: 048
     Dates: start: 20140214, end: 20140218
  14. CALCIUM CARBONATE [Suspect]
  15. PREDNISONE [Suspect]
  16. ACETAMINOPHEN (+) HYDROCODONE BITARTRATE [Concomitant]
  17. LORAZEPAM [Concomitant]
  18. MIRALAX [Concomitant]
  19. OMEPRAZOLE [Concomitant]
  20. SUCRALFATE [Concomitant]

REACTIONS (5)
  - Platelet count decreased [Recovered/Resolved]
  - White blood cell count decreased [Recovered/Resolved]
  - Anaemia [Recovered/Resolved]
  - Febrile neutropenia [Recovered/Resolved]
  - Non-cardiac chest pain [Recovered/Resolved]
